FAERS Safety Report 21672876 (Version 1)
Quarter: 2022Q4

REPORT INFORMATION
  Report Type: Spontaneous
  Country: FR (occurrence: FR)
  Receive Date: 20221202
  Receipt Date: 20221202
  Transmission Date: 20230113
  Serious: Yes (Other)
  Sender: FDA-Public Use
  Company Number: FR-AFSSAPS-AM20222421

PATIENT
  Age: 54 Year
  Sex: Male
  Weight: 59 kg

DRUGS (10)
  1. GEMCITABINE [Suspect]
     Active Substance: GEMCITABINE
     Indication: Gallbladder cancer
     Dosage: 1273.76 MILLIGRAM, EVERY WEEK (2 OUT OF 3 WEEKS, 3 WEEK CYCLE)
     Route: 042
     Dates: start: 20221018, end: 20221108
  2. ONDANSETRON [Suspect]
     Active Substance: ONDANSETRON
     Indication: Prophylaxis
     Dosage: 8 MILLIGRAM, EVERY WEEK (2 OUT OF 3 WEEKS, 3 WEEK CYCLE.)
     Route: 042
     Dates: start: 20221017, end: 20221108
  3. ACETAMINOPHEN [Suspect]
     Active Substance: ACETAMINOPHEN
     Indication: Abdominal pain
     Dosage: 500 MILLIGRAM
     Route: 048
     Dates: start: 20220905, end: 20221025
  4. TRAMADOL [Suspect]
     Active Substance: TRAMADOL
     Indication: Abdominal pain
     Dosage: 50 MILLIGRAM
     Route: 048
     Dates: start: 20221004, end: 20221025
  5. PRIMPERAN [Suspect]
     Active Substance: METOCLOPRAMIDE HYDROCHLORIDE
     Indication: Prophylaxis
     Dosage: 10 MILLIGRAM
     Route: 048
     Dates: start: 20220927, end: 20221025
  6. CISPLATIN [Suspect]
     Active Substance: CISPLATIN
     Indication: Gallbladder cancer
     Dosage: 32 MILLIGRAM, EVERY WEEK (2 OUT OF 3 WEEKS, 3 WEEK CYCLE)
     Route: 042
     Dates: start: 20221018, end: 20221108
  7. 1,3,5-TRIMETHOXYBENZENE [Suspect]
     Active Substance: 1,3,5-TRIMETHOXYBENZENE
     Indication: Abdominal pain
     Dosage: 80 MILLIGRAM
     Route: 048
     Dates: start: 20220905, end: 20221025
  8. METHYLPREDNISOLONE [Suspect]
     Active Substance: METHYLPREDNISOLONE
     Indication: Prophylaxis
     Dosage: 120 MILLIGRAM, EVERY WEEK (2 OUT OF 3 WEEKS, 3 WEEK CYCLE)
     Route: 042
     Dates: start: 20221018, end: 20221108
  9. ALBUTEROL SULFATE [Concomitant]
     Active Substance: ALBUTEROL SULFATE
     Indication: Product used for unknown indication
     Dosage: UNK
     Route: 065
  10. UMECLIDINIUM BROMIDE\VILANTEROL TRIFENATATE [Concomitant]
     Active Substance: UMECLIDINIUM BROMIDE\VILANTEROL TRIFENATATE
     Indication: Product used for unknown indication
     Dosage: UNK
     Route: 065

REACTIONS (1)
  - Eczema [Not Recovered/Not Resolved]

NARRATIVE: CASE EVENT DATE: 20221020
